FAERS Safety Report 14311759 (Version 1)
Quarter: 2017Q4

REPORT INFORMATION
  Report Type: Spontaneous
  Country: JP (occurrence: JP)
  Receive Date: 20171221
  Receipt Date: 20171221
  Transmission Date: 20180321
  Serious: Yes (Other)
  Sender: FDA-Public Use
  Company Number: JP-CIPLA LTD.-2017JP23240

PATIENT

DRUGS (4)
  1. DEXAMETHASONE. [Concomitant]
     Active Substance: DEXAMETHASONE
     Indication: PREMEDICATION
     Dosage: 16 MG, INFUSION IN 50 ML OF NORMAL SALINE
     Route: 042
  2. CYCLOPHOSPHAMIDE. [Suspect]
     Active Substance: CYCLOPHOSPHAMIDE
     Indication: BREAST CANCER STAGE IV
     Dosage: 500 MG/M2, INFUSION IN 250 ML OF NORMAL SALINE (60 MIN), ON DAY 1 OF A 21-DAY CYCLE
     Route: 042
  3. EPIRUBICIN [Suspect]
     Active Substance: EPIRUBICIN
     Indication: BREAST CANCER STAGE IV
     Dosage: 100 MG/M2, INFUSION IN 50 ML OF NORMAL SALINE (15 MIN), ON DAY 1 OF A 21-DAY CYCLE
     Route: 042
  4. FLUOROURACIL. [Suspect]
     Active Substance: FLUOROURACIL
     Indication: BREAST CANCER STAGE IV
     Dosage: 500 MG/M2, INFUSION IN 50 ML OF NORMAL SALINE (15 MIN), ON DAY 1 OF A 21-DAY CYCLE
     Route: 042

REACTIONS (1)
  - Metastases to lymph nodes [Unknown]
